FAERS Safety Report 14860847 (Version 1)
Quarter: 2018Q2

REPORT INFORMATION
  Report Type: Spontaneous
  Country: GB (occurrence: GB)
  Receive Date: 20180508
  Receipt Date: 20180508
  Transmission Date: 20180711
  Serious: Yes (Life-Threatening, Hospitalization)
  Sender: FDA-Public Use
  Company Number: GB-PFIZER INC-2018185595

PATIENT
  Age: 8 Year
  Sex: Female
  Weight: 38 kg

DRUGS (5)
  1. PHENOXYMETHYLPENICILLIN [Suspect]
     Active Substance: PENICILLIN V
     Indication: TONSILLITIS BACTERIAL
     Dosage: UNK
     Route: 048
     Dates: start: 20180215, end: 20180225
  2. IBUPROFEN. [Suspect]
     Active Substance: IBUPROFEN
     Dosage: UNK, AS NEEDED (WHEN REQUIRED AS PER MANUFACTURER INSTRUCTIONS)
     Route: 048
     Dates: start: 20180318, end: 20180321
  3. IBUPROFEN. [Suspect]
     Active Substance: IBUPROFEN
     Indication: PAIN
     Dosage: UNK, AS NEEDED (WHEN REQUIRED AS PER MANUFACTURER INSTRUCTIONS, TOOK FOR APPROXIMATELY 2 DAYS)
     Route: 048
     Dates: start: 20180213, end: 201802
  4. PARACETAMOL [Suspect]
     Active Substance: ACETAMINOPHEN
     Dosage: UNK, AS NEEDED (WHEN REQUIRED AS PER MANUFACTURE INSTRUCTIONS)
     Route: 048
     Dates: start: 20180318, end: 20180321
  5. PARACETAMOL [Suspect]
     Active Substance: ACETAMINOPHEN
     Indication: PAIN
     Dosage: UNK, AS NEEDED (WHEN REQUIRED AS PER MANUFACTURER INSTRUCTIONS, TOOK FOR APPROXIMATELY 2 DAYS)
     Route: 048
     Dates: start: 20180213, end: 201802

REACTIONS (11)
  - Rash [Unknown]
  - Malaise [Unknown]
  - Hypersensitivity [Unknown]
  - Eye swelling [Unknown]
  - Lethargy [Unknown]
  - Swelling face [Unknown]
  - Lip swelling [Unknown]
  - Blister [Unknown]
  - Toxic epidermal necrolysis [Not Recovered/Not Resolved]
  - Pyrexia [Unknown]
  - Somnolence [Unknown]

NARRATIVE: CASE EVENT DATE: 201803
